FAERS Safety Report 12697101 (Version 1)
Quarter: 2016Q3

REPORT INFORMATION
  Report Type: Spontaneous
  Country: JP (occurrence: JP)
  Receive Date: 20160830
  Receipt Date: 20160830
  Transmission Date: 20161109
  Serious: Yes (Hospitalization)
  Sender: FDA-Public Use
  Company Number: JP-SA-2016SA155888

PATIENT
  Age: 24 Month
  Sex: Male
  Weight: 12 kg

DRUGS (1)
  1. CEREZYME [Suspect]
     Active Substance: IMIGLUCERASE
     Indication: GAUCHER^S DISEASE TYPE II
     Dosage: DOSE:800 UNIT(S)
     Route: 041
     Dates: start: 20160727

REACTIONS (1)
  - Oropharyngeal spasm [Unknown]

NARRATIVE: CASE EVENT DATE: 20160815
